FAERS Safety Report 25239797 (Version 1)
Quarter: 2025Q2

REPORT INFORMATION
  Report Type: Spontaneous
  Country: KR (occurrence: KR)
  Receive Date: 20250425
  Receipt Date: 20250425
  Transmission Date: 20250716
  Serious: Yes (Other)
  Sender: MYLAN
  Company Number: KR-MYLANLABS-2025M1034673

PATIENT
  Age: 34 Year
  Sex: Female

DRUGS (16)
  1. ZELDOX [Suspect]
     Active Substance: ZIPRASIDONE
     Indication: Product used for unknown indication
  2. ZELDOX [Suspect]
     Active Substance: ZIPRASIDONE
     Route: 065
  3. ZELDOX [Suspect]
     Active Substance: ZIPRASIDONE
     Route: 065
  4. ZELDOX [Suspect]
     Active Substance: ZIPRASIDONE
  5. FUROSEMIDE [Concomitant]
     Active Substance: FUROSEMIDE
  6. FUROSEMIDE [Concomitant]
     Active Substance: FUROSEMIDE
     Route: 065
  7. FUROSEMIDE [Concomitant]
     Active Substance: FUROSEMIDE
     Route: 065
  8. FUROSEMIDE [Concomitant]
     Active Substance: FUROSEMIDE
  9. IBUPROFEN [Concomitant]
     Active Substance: IBUPROFEN
  10. IBUPROFEN [Concomitant]
     Active Substance: IBUPROFEN
     Route: 065
  11. IBUPROFEN [Concomitant]
     Active Substance: IBUPROFEN
     Route: 065
  12. IBUPROFEN [Concomitant]
     Active Substance: IBUPROFEN
  13. CEFUROXIME SODIUM [Concomitant]
     Active Substance: CEFUROXIME SODIUM
  14. CEFUROXIME SODIUM [Concomitant]
     Active Substance: CEFUROXIME SODIUM
     Route: 065
  15. CEFUROXIME SODIUM [Concomitant]
     Active Substance: CEFUROXIME SODIUM
     Route: 065
  16. CEFUROXIME SODIUM [Concomitant]
     Active Substance: CEFUROXIME SODIUM

REACTIONS (2)
  - Ileus [Unknown]
  - Endometriosis [Unknown]
